FAERS Safety Report 4463159-6 (Version None)
Quarter: 2004Q3

REPORT INFORMATION
  Report Type: 
  Country: None (occurrence: None)
  Receive Date: 20040930
  Receipt Date: 20040914
  Transmission Date: 20050211
  Serious: Yes (Life-Threatening, Hospitalization, Other)
  Sender: FDA-Public Use
  Company Number: US-MERCK-0409USA01254

PATIENT
  Age: 66 Year
  Sex: Male
  Weight: 82 kg

DRUGS (3)
  1. LUMIGAN [Concomitant]
     Route: 065
  2. BETAGAN [Concomitant]
     Route: 065
     Dates: start: 19950101
  3. TIMOPTIC-XE [Suspect]
     Indication: GLAUCOMA
     Route: 047
     Dates: start: 19950101

REACTIONS (3)
  - BRADYARRHYTHMIA [None]
  - BRADYCARDIA [None]
  - CIRCULATORY COLLAPSE [None]
